FAERS Safety Report 4431725-X (Version None)
Quarter: 2004Q3

REPORT INFORMATION
  Report Type: 
  Country: None (occurrence: None)
  Receive Date: 20040825
  Receipt Date: 20040818
  Transmission Date: 20050211
  Serious: Yes (Hospitalization)
  Sender: FDA-Public Use
  Company Number: US-JNJFOC-20040504699

PATIENT
  Sex: Female
  Weight: 52.62 kg

DRUGS (2)
  1. CONCERTA [Suspect]
     Route: 049
     Dates: start: 20010101
  2. NEO-SYNEPHRINE [Suspect]
     Indication: DRUG USE FOR UNKNOWN INDICATION
     Route: 045

REACTIONS (4)
  - DRUG INTERACTION [None]
  - MALIGNANT HYPERTENSION [None]
  - PULMONARY OEDEMA [None]
  - TOOTH EXTRACTION [None]
